FAERS Safety Report 18990868 (Version 3)
Quarter: 2021Q2

REPORT INFORMATION
  Report Type: Spontaneous
  Country: JP (occurrence: JP)
  Receive Date: 20210310
  Receipt Date: 20210517
  Transmission Date: 20210717
  Serious: No
  Sender: FDA-Public Use
  Company Number: JP-009507513-2103JPN000472J

PATIENT
  Age: 81 Year
  Sex: Male
  Weight: 40 kg

DRUGS (1)
  1. CUBICIN [Suspect]
     Active Substance: DAPTOMYCIN
     Indication: ENDOCARDITIS
     Dosage: 175 MILLIGRAM, QD
     Route: 041
     Dates: start: 20210220, end: 20210301

REACTIONS (2)
  - Eosinophil count decreased [Recovering/Resolving]
  - Underdose [Unknown]

NARRATIVE: CASE EVENT DATE: 20210220
